FAERS Safety Report 6548159-4 (Version None)
Quarter: 2010Q1

REPORT INFORMATION
  Report Type: 
  Country: None (occurrence: None)
  Receive Date: 20100124
  Receipt Date: 20090205
  Transmission Date: 20100710
  Serious: No
  Sender: FDA-Public Use
  Company Number: US-ALLERGAN-0901391US

PATIENT
  Age: 39 Year
  Sex: Female

DRUGS (1)
  1. RESTASIS [Suspect]
     Indication: SJOGREN'S SYNDROME
     Dosage: UNK, SINGLE
     Route: 047
     Dates: start: 20090204

REACTIONS (1)
  - EYE IRRITATION [None]
